FAERS Safety Report 19659078 (Version 4)
Quarter: 2021Q3

REPORT INFORMATION
  Report Type: Spontaneous
  Country: JP (occurrence: JP)
  Receive Date: 20210805
  Receipt Date: 20210923
  Transmission Date: 20211014
  Serious: Yes (Hospitalization)
  Sender: FDA-Public Use
  Company Number: JP-JNJFOC-20210803193

PATIENT
  Age: 53 Year
  Sex: Male
  Weight: 69.5 kg

DRUGS (25)
  1. STELARA [Suspect]
     Active Substance: USTEKINUMAB
     Route: 058
     Dates: start: 20210702, end: 20210702
  2. XELJANZ [Suspect]
     Active Substance: TOFACITINIB CITRATE
     Route: 048
     Dates: start: 20191123, end: 20201204
  3. STELARA [Suspect]
     Active Substance: USTEKINUMAB
     Route: 058
     Dates: start: 20210507, end: 20210507
  4. WHITE PETROLATUM [Concomitant]
     Active Substance: PETROLATUM
     Dosage: DOSE UNKNOWN
     Route: 065
  5. HIRUDOID [Concomitant]
     Active Substance: GLYCOSAMINOGLYCANS
     Dosage: DOSE UNKNOWN, ONE TIME DAILY OR TWO TIMES DAILY
     Route: 061
  6. EDIROL [Concomitant]
     Active Substance: ELDECALCITOL
     Dosage: RIGHT AFTER BREAKFAST
     Route: 048
  7. MIYA?BM [Concomitant]
     Active Substance: CLOSTRIDIUM BUTYRICUM SPORES STRAIN M-55
     Dosage: RIGHT AFTER EACH MEAL
     Route: 048
  8. REBAMIPIDE [Concomitant]
     Active Substance: REBAMIPIDE
     Dosage: RIGHT AFTER BREAKFAST
     Route: 048
  9. IMURAN [Suspect]
     Active Substance: AZATHIOPRINE
     Route: 048
     Dates: start: 20190713, end: 20190912
  10. PENTASA [Concomitant]
     Active Substance: MESALAMINE
     Route: 054
  11. IMURAN [Suspect]
     Active Substance: AZATHIOPRINE
     Dosage: RIGHT AFTER BREAKFAST
     Route: 048
     Dates: start: 20190913, end: 20210801
  12. XELJANZ [Suspect]
     Active Substance: TOFACITINIB CITRATE
     Indication: COLITIS ULCERATIVE
     Route: 048
     Dates: start: 20191123, end: 20201204
  13. BIOFERMIN [LACTOMIN] [Concomitant]
     Active Substance: DIETARY SUPPLEMENT\PROBIOTICS
     Dosage: RIGHT AFTER EACH MEAL
     Route: 048
  14. NEXIUM [Concomitant]
     Active Substance: ESOMEPRAZOLE MAGNESIUM
     Dosage: RIGHT AFTER BREAKFAST
     Route: 048
  15. STELARA [Suspect]
     Active Substance: USTEKINUMAB
     Route: 058
     Dates: start: 20210312, end: 20210312
  16. IMURAN [Suspect]
     Active Substance: AZATHIOPRINE
     Indication: COLITIS ULCERATIVE
     Route: 048
     Dates: start: 20190622, end: 20190712
  17. ENSURE H [Concomitant]
     Active Substance: CARBOHYDRATES\FATTY ACIDS\MINERALS\PROTEIN\VITAMINS
     Dosage: , IN THE MORNING
     Route: 065
  18. ALLEGRA [Concomitant]
     Active Substance: FEXOFENADINE HYDROCHLORIDE
     Dosage: RIGHT AFTER BREAKFAST AND DINNER
     Route: 048
  19. STELARA [Suspect]
     Active Substance: USTEKINUMAB
     Route: 058
     Dates: start: 20210115, end: 20210115
  20. PENTASA [Concomitant]
     Active Substance: MESALAMINE
     Dosage: RIGHT AFTER BREAKFAST AND DINNER
     Route: 048
  21. PENTASA [Concomitant]
     Active Substance: MESALAMINE
     Dosage: IN THE MORNING
     Route: 054
  22. STELARA [Suspect]
     Active Substance: USTEKINUMAB
     Indication: COLITIS ULCERATIVE
     Route: 042
     Dates: start: 20201120, end: 20201120
  23. SAMTIREL [Concomitant]
     Active Substance: ATOVAQUONE
     Dosage: RIGHT AFTER DINNER
     Route: 048
  24. PREDONINE [Concomitant]
     Active Substance: PREDNISOLONE
     Dosage: RIGHT AFTER BREAKFAST
     Route: 048
  25. FERROUS SODIUM CITRATE [Concomitant]
     Active Substance: SODIUM FERROUS CITRATE
     Dosage: RIGHT AFTER BREAKFAST
     Route: 048

REACTIONS (1)
  - Plasmablastic lymphoma [Not Recovered/Not Resolved]

NARRATIVE: CASE EVENT DATE: 20210610
